FAERS Safety Report 20674233 (Version 1)
Quarter: 2022Q2

REPORT INFORMATION
  Report Type: Spontaneous
  Country: US (occurrence: US)
  Receive Date: 20220405
  Receipt Date: 20220405
  Transmission Date: 20220721
  Serious: No
  Sender: FDA-Public Use
  Company Number: US-GILEAD-2022-0576149

PATIENT
  Sex: Female

DRUGS (2)
  1. HARVONI [Suspect]
     Active Substance: LEDIPASVIR\SOFOSBUVIR
     Indication: Infection
     Dosage: 1 DOSAGE FORM (90-400MG), QD
     Route: 048
  2. BUPRENORPHINE HYDROCHLORIDE [Concomitant]
     Active Substance: BUPRENORPHINE HYDROCHLORIDE

REACTIONS (4)
  - Fatigue [Unknown]
  - Abdominal pain upper [Unknown]
  - Product dose omission in error [Recovered/Resolved]
  - Off label use [Not Recovered/Not Resolved]
